FAERS Safety Report 5735452-8 (Version None)
Quarter: 2008Q2

REPORT INFORMATION
  Report Type: 
  Country: None (occurrence: None)
  Receive Date: 20080508
  Receipt Date: 20080508
  Transmission Date: 20081010
  Serious: Yes (Life-Threatening)
  Sender: FDA-Public Use
  Company Number: None

PATIENT
  Age: 73 Year
  Sex: Female
  Weight: 107 kg

DRUGS (1)
  1. HYDROMORPHONE HCL [Suspect]
     Dosage: 0.2MG/ML EVERY 6 MINUTES IV BOLUS
     Route: 040

REACTIONS (1)
  - SEDATION [None]
